FAERS Safety Report 13001316 (Version 2)
Quarter: 2017Q1

REPORT INFORMATION
  Report Type: Spontaneous
  Country: US (occurrence: US)
  Receive Date: 20161206
  Receipt Date: 20170118
  Transmission Date: 20170428
  Serious: No
  Sender: FDA-Public Use
  Company Number: US-PFIZER INC-2016562773

PATIENT
  Age: 51 Year
  Sex: Female
  Weight: 66 kg

DRUGS (14)
  1. MORPHINE SULFATE. [Concomitant]
     Active Substance: MORPHINE SULFATE
     Indication: PAIN
     Dosage: UNK, AS NEEDED
  2. MOTRIN [Concomitant]
     Active Substance: IBUPROFEN
     Indication: PAIN
     Dosage: 600 MG, AS NEEDED
  3. TRIAMTERENE AND HYDROCHLOROTHIAZID [Concomitant]
     Active Substance: HYDROCHLOROTHIAZIDE\TRIAMTERENE
     Indication: ADRENAL INSUFFICIENCY
     Dosage: 1 DF, DAILY
  4. FENTANYL. [Concomitant]
     Active Substance: FENTANYL
     Dosage: EVERY TWO DAYS
  5. VITAMIN D2 [Concomitant]
     Active Substance: ERGOCALCIFEROL
     Indication: ADRENAL INSUFFICIENCY
     Dosage: 50000 MG, WEEKLY
  6. ESTROGEN/METHYLTES [Concomitant]
     Active Substance: ESTROGENS\METHYLTESTOSTERONE
     Indication: ADRENAL INSUFFICIENCY
     Dosage: 1 DF, DAILY
  7. VIVELLEDOT [Concomitant]
     Indication: ADRENAL INSUFFICIENCY
     Dosage: PATCH, EVERY THREE DAYS
  8. GENOTROPIN MQ [Suspect]
     Active Substance: SOMATROPIN
     Indication: ADRENAL INSUFFICIENCY
     Dosage: 0.6 MG
  9. GENOTROPIN MQ [Suspect]
     Active Substance: SOMATROPIN
     Indication: HYPOPITUITARISM
     Dosage: 0.8 MG, UNK
     Dates: start: 20080917
  10. PHENTERMINE. [Concomitant]
     Active Substance: PHENTERMINE
     Indication: SUPPLEMENTATION THERAPY
     Dosage: 1 DF, DAILY
  11. CYTOMEL [Concomitant]
     Active Substance: LIOTHYRONINE SODIUM
     Indication: ADRENAL INSUFFICIENCY
     Dosage: 1 DF, DAILY
  12. PREDNISONE. [Concomitant]
     Active Substance: PREDNISONE
     Indication: ADRENAL INSUFFICIENCY
     Dosage: 1 DF, DAILY
  13. UNITHROID [Concomitant]
     Active Substance: LEVOTHYROXINE SODIUM
     Indication: ADRENAL INSUFFICIENCY
     Dosage: 1 DF, DAILY
  14. FENTANYL. [Concomitant]
     Active Substance: FENTANYL
     Indication: PAIN
     Dosage: PATCH, EVERY THREE DAYS

REACTIONS (5)
  - Fatigue [Unknown]
  - Malaise [Unknown]
  - Distractibility [Unknown]
  - Lethargy [Unknown]
  - Disease recurrence [Unknown]

NARRATIVE: CASE EVENT DATE: 2016
